FAERS Safety Report 7032229-0 (Version None)
Quarter: 2010Q4

REPORT INFORMATION
  Report Type: 
  Country: None (occurrence: None)
  Receive Date: 20101007
  Receipt Date: 20100929
  Transmission Date: 20110411
  Serious: Yes (Hospitalization)
  Sender: FDA-Public Use
  Company Number: BR-WYE-H17837710

PATIENT
  Sex: Male

DRUGS (21)
  1. EFFEXOR XR [Suspect]
     Route: 048
     Dates: start: 20090810, end: 20100910
  2. EFFEXOR XR [Suspect]
     Route: 048
     Dates: start: 20100911
  3. DIGOXIN [Concomitant]
     Dosage: UNKNOWN
     Dates: start: 20090101
  4. KETOCONAZOLE [Concomitant]
     Dosage: UNKNOWN
     Dates: start: 20090101
  5. BETAMETHASONE [Concomitant]
     Dosage: UNKNOWN
     Dates: start: 20090101
  6. LASIX [Concomitant]
     Dosage: UNKNOWN
     Dates: start: 20090101
  7. APRESOLINE [Concomitant]
     Dosage: UNKNOWN
  8. MONOCARD [Concomitant]
     Dosage: UNKNOWN
  9. ASPIRIN [Concomitant]
     Dosage: UNKNOWN
  10. PANTOPRAZOLE [Concomitant]
     Dosage: UNKNOWN
  11. MOTILIUM [Concomitant]
     Dosage: UNKNOWN
  12. SYNTHROID [Concomitant]
     Dosage: UNKNOWN
  13. DORMONID [Concomitant]
     Dosage: UNKNOWN
  14. SEROQUEL [Concomitant]
     Dosage: UNKNOWN
  15. PRAMIPEXOLE DIHYDROCHLORIDE [Concomitant]
     Dosage: UNKNOWN
  16. STALEVO 100 [Concomitant]
     Dosage: UNKNOWN
  17. TAMSULOSIN HYDROCHLORIDE [Concomitant]
     Dosage: UNKNOWN
  18. METFORMIN [Concomitant]
     Dosage: UNKNOWN
  19. ZOLPIDEM TARTRATE [Concomitant]
     Dosage: UNKNOWN
  20. EPOGEN [Concomitant]
     Dosage: UNKNOWN
  21. LIPITOR [Concomitant]
     Dosage: 10 MG, FREQUENCY NOT SPECIFIED
     Dates: start: 20090101

REACTIONS (5)
  - ABDOMINAL PAIN [None]
  - HALLUCINATION [None]
  - LUNG INFECTION [None]
  - PELVIC PAIN [None]
  - THROMBOSIS [None]
